FAERS Safety Report 20828171 (Version 3)
Quarter: 2022Q2

REPORT INFORMATION
  Report Type: Spontaneous
  Country: US (occurrence: US)
  Receive Date: 20220513
  Receipt Date: 20220627
  Transmission Date: 20220721
  Serious: No
  Sender: FDA-Public Use
  Company Number: US-SA-SAC20220506001858

PATIENT
  Sex: Female

DRUGS (1)
  1. AUBAGIO [Suspect]
     Active Substance: TERIFLUNOMIDE
     Indication: Multiple sclerosis
     Dosage: 14 MG, QD
     Route: 048

REACTIONS (6)
  - Pain [Unknown]
  - Malaise [Unknown]
  - Dizziness [Recovering/Resolving]
  - Glassy eyes [Recovering/Resolving]
  - Head discomfort [Recovering/Resolving]
  - Product dose omission issue [Unknown]
